FAERS Safety Report 6079375-6 (Version None)
Quarter: 2009Q1

REPORT INFORMATION
  Report Type: 
  Country: None (occurrence: None)
  Receive Date: 20090216
  Receipt Date: 20090211
  Transmission Date: 20090719
  Serious: Yes (Disabling, Other)
  Sender: FDA-Public Use
  Company Number: BE-ASTRAZENECA-2008AC03160

PATIENT
  Age: 62 Year
  Sex: Male
  Weight: 101 kg

DRUGS (3)
  1. CRESTOR [Suspect]
     Indication: HYPERCHOLESTEROLAEMIA
     Route: 048
     Dates: start: 20070801, end: 20070901
  2. FASTUM [Interacting]
     Indication: TENDONITIS
     Dates: start: 20070822
  3. NSAID [Concomitant]
     Indication: TENDONITIS

REACTIONS (2)
  - DRUG INTERACTION [None]
  - PHOTOSENSITIVITY REACTION [None]
